FAERS Safety Report 12782190 (Version 4)
Quarter: 2017Q2

REPORT INFORMATION
  Report Type: Report from Study
  Country: US (occurrence: US)
  Receive Date: 20160927
  Receipt Date: 20170412
  Transmission Date: 20170830
  Serious: Yes (Death, Other)
  Sender: FDA-Public Use
  Company Number: US-BIOGEN-2016BI00295716

PATIENT
  Age: 52 Year
  Sex: Female

DRUGS (4)
  1. LOPERAMIDE [Concomitant]
     Active Substance: LOPERAMIDE
     Indication: PRODUCT USED FOR UNKNOWN INDICATION
     Route: 065
  2. TYSABRI [Suspect]
     Active Substance: NATALIZUMAB
     Indication: CROHN^S DISEASE
     Dosage: INFUSED OVER 1 HOUR
     Route: 042
     Dates: start: 20130521, end: 20160516
  3. DEXAMETHASONE. [Concomitant]
     Active Substance: DEXAMETHASONE
     Indication: PRODUCT USED FOR UNKNOWN INDICATION
     Route: 065
  4. TYSABRI [Suspect]
     Active Substance: NATALIZUMAB
     Dosage: INFUSED OVER 1 HOUR
     Route: 042
     Dates: start: 20140515, end: 201606

REACTIONS (6)
  - Glioblastoma [Fatal]
  - Nuclear magnetic resonance imaging abnormal [Unknown]
  - Amnesia [Unknown]
  - Intracranial tumour haemorrhage [Fatal]
  - Anaplastic astrocytoma [Fatal]
  - Brain oedema [Fatal]

NARRATIVE: CASE EVENT DATE: 201606
